FAERS Safety Report 8687641 (Version 3)
Quarter: 2012Q4

REPORT INFORMATION
  Report Type: Report from Study
  Country: CA (occurrence: CA)
  Receive Date: 20120727
  Receipt Date: 20121127
  Transmission Date: 20130627
  Serious: Yes (Hospitalization, Other)
  Sender: FDA-Public Use
  Company Number: CA-JNJFOC-20120711479

PATIENT
  Age: 47 None
  Sex: Male
  Weight: 105.4 kg

DRUGS (4)
  1. REMICADE [Suspect]
     Indication: RHEUMATOID ARTHRITIS
     Route: 042
     Dates: start: 20090805
  2. REMICADE [Suspect]
     Indication: RHEUMATOID ARTHRITIS
     Route: 042
     Dates: start: 201205
  3. METHOTREXATE [Concomitant]
     Route: 058
  4. OMEPRAZOLE [Concomitant]
     Route: 065

REACTIONS (2)
  - Post procedural infection [Recovered/Resolved]
  - Lower limb fracture [Unknown]
